FAERS Safety Report 7372344-5 (Version None)
Quarter: 2011Q1

REPORT INFORMATION
  Report Type: 
  Country: None (occurrence: None)
  Receive Date: 20110324
  Receipt Date: 20110321
  Transmission Date: 20110831
  Serious: Yes (Congenital Anomaly)
  Sender: FDA-Public Use
  Company Number: B0707503A

PATIENT

DRUGS (1)
  1. LAMICTAL [Suspect]
     Indication: EPILEPSY
     Route: 064
     Dates: end: 20101119

REACTIONS (5)
  - URETHRAL DILATATION [None]
  - PYELOCALIECTASIS [None]
  - DRUG EXPOSURE DURING PREGNANCY [None]
  - CONGENITAL VESICOURETERIC REFLUX [None]
  - CONGENITAL MEGAURETER [None]
